FAERS Safety Report 9981603 (Version 1)
Quarter: 2014Q1

REPORT INFORMATION
  Report Type: Spontaneous
  Country: US (occurrence: None)
  Receive Date: 20140306
  Receipt Date: 20140306
  Transmission Date: 20141002
  Serious: No
  Sender: FDA-Public Use
  Company Number: None

PATIENT
  Age: 15 Year
  Sex: Female
  Weight: 63.5 kg

DRUGS (4)
  1. TRAZODONE [Suspect]
     Dosage: BEDTIME
     Route: 048
     Dates: start: 20140218, end: 20140219
  2. SEROQUEL [Concomitant]
  3. PRILOSEC [Concomitant]
  4. ZOLOFT [Concomitant]

REACTIONS (1)
  - Pruritus [None]
